FAERS Safety Report 20244258 (Version 1)
Quarter: 2021Q4

REPORT INFORMATION
  Report Type: Spontaneous
  Country: JP (occurrence: JP)
  Receive Date: 20211229
  Receipt Date: 20211229
  Transmission Date: 20220303
  Serious: Yes (Other)
  Sender: FDA-Public Use
  Company Number: JP-DSJP-DSJ-2021-143117

PATIENT
  Sex: Female

DRUGS (4)
  1. DENOSUMAB [Suspect]
     Active Substance: DENOSUMAB
     Indication: Metastases to bone
     Dosage: UNK
     Route: 065
  2. ERIBULIN [Suspect]
     Active Substance: ERIBULIN
     Indication: Breast cancer recurrent
     Dosage: UNK, NUMBER OF DOSES:1 TIMES
     Route: 065
  3. ERIBULIN [Suspect]
     Active Substance: ERIBULIN
     Dosage: UNK, ONCE EVERY 2 WK, NUMBER OF DOSES:4 TIMES
     Route: 065
  4. ERIBULIN [Suspect]
     Active Substance: ERIBULIN
     Dosage: UNK, ONCE EVERY 3 WK, NUMBER OF DOSES:1 TIMES
     Route: 065

REACTIONS (1)
  - Myelosuppression [Unknown]
